FAERS Safety Report 10616824 (Version 1)
Quarter: 2014Q4

REPORT INFORMATION
  Report Type: Spontaneous
  Country: US (occurrence: None)
  Receive Date: 20141126
  Receipt Date: 20141126
  Transmission Date: 20150529
  Serious: Yes (Other)
  Sender: FDA-Public Use
  Company Number: None

PATIENT
  Age: 61 Year
  Sex: Female

DRUGS (6)
  1. LEUCOVORIN [Concomitant]
     Active Substance: LEUCOVORIN
  2. DIGOXIN. [Concomitant]
     Active Substance: DIGOXIN
  3. FEMARA [Concomitant]
     Active Substance: LETROZOLE
  4. HUMIRA [Concomitant]
     Active Substance: ADALIMUMAB
  5. METHOTREXATE [Concomitant]
     Active Substance: METHOTREXATE
  6. CAPECITABINE 500 MG [Suspect]
     Active Substance: CAPECITABINE
     Indication: COLON CANCER
     Dosage: 3 TABS BID FOR 14 DAY
     Route: 048
     Dates: start: 20141111

REACTIONS (4)
  - Pain [None]
  - Erythema [None]
  - Palmar-plantar erythrodysaesthesia syndrome [None]
  - Inflammation [None]

NARRATIVE: CASE EVENT DATE: 20141120
